FAERS Safety Report 20662503 (Version 1)
Quarter: 2022Q2

REPORT INFORMATION
  Report Type: Report from Study
  Country: US (occurrence: US)
  Receive Date: 20220401
  Receipt Date: 20220401
  Transmission Date: 20220721
  Serious: Yes (Hospitalization)
  Sender: FDA-Public Use
  Company Number: US-TEVA-2022-US-2022005

PATIENT
  Age: 68 Year
  Sex: Female
  Weight: 76.1 kg

DRUGS (2)
  1. SYNRIBO [Suspect]
     Active Substance: OMACETAXINE MEPESUCCINATE
     Indication: Myelodysplastic syndrome
     Dosage: 1.7 MILLIGRAM DAILY; D 1-7
     Route: 058
     Dates: start: 20220317, end: 20220323
  2. VIDAZA [Suspect]
     Active Substance: AZACITIDINE
     Indication: Myelodysplastic syndrome
     Route: 065

REACTIONS (3)
  - Hypotension [Unknown]
  - Hypervolaemia [Unknown]
  - Acute kidney injury [Unknown]

NARRATIVE: CASE EVENT DATE: 20220322
